FAERS Safety Report 5196693-4 (Version None)
Quarter: 2006Q4

REPORT INFORMATION
  Report Type: 
  Country: None (occurrence: None)
  Receive Date: 20061227
  Receipt Date: 20061026
  Transmission Date: 20070319
  Serious: Yes (Other)
  Sender: FDA-Public Use
  Company Number: 2006071579

PATIENT
  Age: 41 Year
  Sex: Female
  Weight: 68.0396 kg

DRUGS (13)
  1. CELEBREX [Suspect]
     Indication: ILL-DEFINED DISORDER
     Dates: start: 20010131, end: 20010726
  2. VIOXX [Suspect]
     Indication: ILL-DEFINED DISORDER
     Dates: start: 20000712, end: 20010726
  3. AGGRENOX [Concomitant]
  4. DEPAKOTE [Concomitant]
  5. TIZANIDINE HCL [Concomitant]
  6. NEURONTIN [Concomitant]
  7. LISINOPRIL [Concomitant]
  8. DETROL LA [Concomitant]
  9. ZOCOR [Concomitant]
  10. LORAZEPAM [Concomitant]
  11. LEXAPRO [Concomitant]
  12. ALL OTHER THERAPEUTIC PRODUCTS (ALL OTHER THERAPEUTIC PRODUCTS) [Concomitant]
  13. NITRO (GLYCERYL TRINITRATE) [Concomitant]

REACTIONS (10)
  - AORTIC VALVE INCOMPETENCE [None]
  - CARDIAC ANEURYSM [None]
  - CEREBROVASCULAR ACCIDENT [None]
  - DIZZINESS [None]
  - LOSS OF CONSCIOUSNESS [None]
  - MITRAL VALVE INCOMPETENCE [None]
  - SENSORY LOSS [None]
  - SUBCLAVIAN ARTERY STENOSIS [None]
  - TRICUSPID VALVE INCOMPETENCE [None]
  - VOMITING [None]
